FAERS Safety Report 4284575-1 (Version None)
Quarter: 2004Q1

REPORT INFORMATION
  Report Type: 
  Country: None (occurrence: None)
  Receive Date: 20040130
  Receipt Date: 20040116
  Transmission Date: 20041129
  Serious: Yes (Life-Threatening, Hospitalization)
  Sender: FDA-Public Use
  Company Number: RENA-10863

PATIENT
  Age: 44 Year
  Sex: Male

DRUGS (12)
  1. PHOSBLOCK [Suspect]
     Indication: HYPERPHOSPHATAEMIA
     Dosage: 1.5 G QD PO
     Route: 048
     Dates: start: 20030909, end: 20040112
  2. ALFACALCIDOL [Concomitant]
  3. ALLOPURINOL [Concomitant]
  4. MECOBALAMIN [Concomitant]
  5. CALCIUM CARBONATE [Concomitant]
  6. NICERITROL [Concomitant]
  7. BERAPROST [Concomitant]
  8. THEOPHYLLINE [Concomitant]
  9. SALICYLAMIDE [Concomitant]
  10. SERRAPEPTASE [Concomitant]
  11. TULOBUTEROL [Concomitant]
  12. EPOETIN ALFA [Concomitant]

REACTIONS (7)
  - ABDOMINAL PAIN [None]
  - COMPUTERISED TOMOGRAM ABNORMAL [None]
  - CONSTIPATION [None]
  - DIVERTICULUM INTESTINAL [None]
  - HAEMORRHAGIC ASCITES [None]
  - LARGE INTESTINE PERFORATION [None]
  - PERITONITIS [None]
